FAERS Safety Report 24002226 (Version 2)
Quarter: 2024Q2

REPORT INFORMATION
  Report Type: Spontaneous
  Country: US (occurrence: US)
  Receive Date: 20240622
  Receipt Date: 20240624
  Transmission Date: 20240716
  Serious: Yes (Other)
  Sender: FDA-Public Use
  Company Number: US-ABBVIE-5805268

PATIENT
  Age: 77 Year
  Sex: Female
  Weight: 77 kg

DRUGS (6)
  1. REFRESH TEARS [Suspect]
     Active Substance: CARBOXYMETHYLCELLULOSE SODIUM
     Indication: Dry eye
     Dosage: 1-3 DROPS ON LEFT EYE, LAST ADMINISTRATION DATE- 2024
     Route: 047
     Dates: start: 202406
  2. REFRESH TEARS [Suspect]
     Active Substance: CARBOXYMETHYLCELLULOSE SODIUM
     Indication: Dry eye
     Dosage: 1 DROP ON ECH EYE, START DATE TEXT: ON AND OFF SEVERAL YEARS AGO
     Route: 047
  3. LIVALO [Concomitant]
     Active Substance: PITAVASTATIN CALCIUM
     Indication: Blood cholesterol increased
     Route: 065
  4. REFRESH CLASSIC [Suspect]
     Active Substance: POLYVINYL ALCOHOL\POVIDONE
     Indication: Product used for unknown indication
     Dosage: START DATE TEXT: ON AND OFF SEVERAL YEARS AGO
     Route: 047
  5. REPATHA [Concomitant]
     Active Substance: EVOLOCUMAB
     Indication: Blood cholesterol increased
     Route: 065
  6. AMLODIPINE [Concomitant]
     Active Substance: AMLODIPINE BESYLATE
     Indication: Hypertension
     Route: 065

REACTIONS (6)
  - Cataract [Recovered/Resolved]
  - Eye disorder [Recovering/Resolving]
  - Drug ineffective [Not Recovered/Not Resolved]
  - Eye irritation [Recovering/Resolving]
  - Cataract [Not Recovered/Not Resolved]
  - Procedural pain [Recovering/Resolving]

NARRATIVE: CASE EVENT DATE: 20240501
